FAERS Safety Report 6264202-4 (Version None)
Quarter: 2009Q3

REPORT INFORMATION
  Report Type: 
  Country: None (occurrence: None)
  Receive Date: 20090708
  Receipt Date: 20090624
  Transmission Date: 20100115
  Serious: Yes (Death, Hospitalization)
  Sender: FDA-Public Use
  Company Number: CERZ-1000656

PATIENT
  Age: 10 Year
  Sex: Male

DRUGS (4)
  1. CEREZYME [Suspect]
     Indication: GAUCHER'S DISEASE
     Dosage: 800 IU, Q2W, INTRAVENOUS
     Route: 042
     Dates: start: 20001001, end: 20081216
  2. TPN [Concomitant]
  3. CARBOCISTEINE (CARBOCISTEINE) [Concomitant]
  4. FENOTEROL HYDROBROMIDE          (FENOTEROL HYDROBROMIDE) [Concomitant]

REACTIONS (9)
  - BLOOD PRESSURE DECREASED [None]
  - BRONCHITIS CHRONIC [None]
  - CARDIO-RESPIRATORY ARREST [None]
  - CONDITION AGGRAVATED [None]
  - CONVULSION [None]
  - DYSPHAGIA [None]
  - HEART RATE DECREASED [None]
  - NO THERAPEUTIC RESPONSE [None]
  - URINE OUTPUT DECREASED [None]
